FAERS Safety Report 14142102 (Version 1)
Quarter: 2017Q4

REPORT INFORMATION
  Report Type: Spontaneous
  Country: AU (occurrence: AU)
  Receive Date: 20171030
  Receipt Date: 20171030
  Transmission Date: 20180321
  Serious: Yes (Life-Threatening)
  Sender: FDA-Public Use
  Company Number: AU-TEVA-818352ISR

PATIENT
  Age: 30 Year
  Sex: Male
  Weight: 68 kg

DRUGS (5)
  1. OXYCODONE (BRAND UNSPECIFIED) [Suspect]
     Active Substance: OXYCODONE
  2. ROCON [Suspect]
     Active Substance: ROCURONIUM BROMIDE
     Indication: SURGERY
     Dosage: 50 MG ONCE ONLY (40 MG WAS ALSO REPORTED)
     Route: 042
     Dates: start: 20171011
  3. FENTANYL. [Suspect]
     Active Substance: FENTANYL
  4. PROPOFOL. [Suspect]
     Active Substance: PROPOFOL
  5. CEFAZOLIN (BRAND UNSPECIFIED) [Suspect]
     Active Substance: CEFAZOLIN

REACTIONS (1)
  - Drug effect incomplete [Recovered/Resolved]

NARRATIVE: CASE EVENT DATE: 20171011
